FAERS Safety Report 4474052-7 (Version None)
Quarter: 2004Q4

REPORT INFORMATION
  Report Type: 
  Country: None (occurrence: None)
  Receive Date: 20041008
  Receipt Date: 20040922
  Transmission Date: 20050328
  Serious: Yes (Hospitalization)
  Sender: FDA-Public Use
  Company Number: 2004IC000869

PATIENT
  Age: 59 Year
  Sex: Male

DRUGS (4)
  1. MESTINON [Suspect]
     Indication: MYASTHENIA GRAVIS
     Dosage: 90 MG, 3 TIMES A DAY ORAL
     Route: 048
     Dates: start: 20030301, end: 20040813
  2. PREDNISONE [Concomitant]
  3. ZOCOR [Concomitant]
  4. ACETYLSALICYLIC ACID [Concomitant]

REACTIONS (3)
  - CONDITION AGGRAVATED [None]
  - MYASTHENIA GRAVIS [None]
  - PHARMACEUTICAL PRODUCT COMPLAINT [None]
